FAERS Safety Report 7089134-3 (Version None)
Quarter: 2010Q4

REPORT INFORMATION
  Report Type: 
  Country: None (occurrence: None)
  Receive Date: 20101108
  Receipt Date: 20101103
  Transmission Date: 20110411
  Serious: Yes (Other)
  Sender: FDA-Public Use
  Company Number: GB-BRISTOL-MYERS SQUIBB COMPANY-15286271

PATIENT
  Age: 50 Year
  Sex: Male

DRUGS (1)
  1. DASATINIB [Suspect]
     Indication: CHRONIC MYELOID LEUKAEMIA
     Dosage: 1DF:70-100MG INT:18MAY09;RESTARTED:13JUL09;INT:16AUG;RESTARTED ON 13SEP10(50-80MG)
     Route: 048
     Dates: start: 20090420

REACTIONS (5)
  - ANAEMIA [None]
  - MYELODYSPLASTIC SYNDROME [None]
  - NEUTROPENIA [None]
  - PLEURAL EFFUSION [None]
  - THROMBOCYTOPENIA [None]
